FAERS Safety Report 6905149-7 (Version None)
Quarter: 2010Q3

REPORT INFORMATION
  Report Type: 
  Country: None (occurrence: None)
  Receive Date: 20100804
  Receipt Date: 20091012
  Transmission Date: 20110219
  Serious: No
  Sender: FDA-Public Use
  Company Number: US-PFIZER INC-2009233973

PATIENT
  Sex: Male
  Weight: 71.655 kg

DRUGS (8)
  1. LYRICA [Suspect]
     Indication: RADIAL NERVE PALSY
     Dosage: 150 MG, 2X/DAY
     Dates: start: 20090624
  2. ATENOLOL [Concomitant]
     Indication: BLOOD PRESSURE ABNORMAL
     Dosage: 25 MG, 1X/DAY
  3. PROZAC [Concomitant]
     Dosage: 20 MG, 1X/DAY
  4. LORTAB [Concomitant]
     Dosage: 7.5 MG, UNK
  5. KLONOPIN [Concomitant]
     Dosage: 1 MG, 2X/DAY
  6. VITAMIN E [Concomitant]
     Dosage: UNK
  7. ASCORBIC ACID [Concomitant]
     Dosage: UNK
  8. AMBIEN [Concomitant]
     Dosage: UNK

REACTIONS (1)
  - OEDEMA PERIPHERAL [None]
